FAERS Safety Report 17158076 (Version 1)
Quarter: 2019Q4

REPORT INFORMATION
  Report Type: Spontaneous
  Country: US (occurrence: US)
  Receive Date: 20191216
  Receipt Date: 20191216
  Transmission Date: 20200122
  Serious: No
  Sender: FDA-Public Use
  Company Number: US-JNJFOC-20191219208

PATIENT
  Age: 50 Year
  Sex: Female

DRUGS (1)
  1. REMICADE [Suspect]
     Active Substance: INFLIXIMAB
     Indication: PSORIATIC ARTHROPATHY
     Dosage: 900 MG BATCH: 19HD49021/ EXPIRY: 30/JUN/2022
     Route: 042
     Dates: start: 201801

REACTIONS (1)
  - Malaise [Unknown]

NARRATIVE: CASE EVENT DATE: 201912
